FAERS Safety Report 7429620-7 (Version None)
Quarter: 2011Q2

REPORT INFORMATION
  Report Type: 
  Country: None (occurrence: None)
  Receive Date: 20110421
  Receipt Date: 20110411
  Transmission Date: 20111010
  Serious: Yes (Other)
  Sender: FDA-Public Use
  Company Number: B0713876A

PATIENT
  Age: 57 Year
  Sex: Female

DRUGS (2)
  1. TYVERB [Suspect]
     Indication: BREAST CANCER METASTATIC
     Route: 048
     Dates: start: 20110101
  2. NAVELBINE [Concomitant]
     Indication: BREAST CANCER METASTATIC
     Route: 065
     Dates: start: 20110101

REACTIONS (5)
  - DIARRHOEA [None]
  - OESOPHAGEAL ULCER HAEMORRHAGE [None]
  - HAEMATOCRIT DECREASED [None]
  - VOMITING [None]
  - ANAEMIA [None]
